FAERS Safety Report 11639180 (Version 3)
Quarter: 2016Q1

REPORT INFORMATION
  Report Type: Spontaneous
  Country: US (occurrence: US)
  Receive Date: 20151019
  Receipt Date: 20160218
  Transmission Date: 20160525
  Serious: Yes (Hospitalization)
  Sender: FDA-Public Use
  Company Number: US-AUROBINDO-AUR-APL-2015-09280

PATIENT

DRUGS (2)
  1. METAXALONE. [Suspect]
     Active Substance: METAXALONE
     Indication: PRODUCT USED FOR UNKNOWN INDICATION
     Dosage: 800 MG,EVERY 12 HOURS
     Route: 065
  2. VENLAFAXINE [Suspect]
     Active Substance: VENLAFAXINE HYDROCHLORIDE
     Indication: PRODUCT USED FOR UNKNOWN INDICATION
     Route: 065

REACTIONS (12)
  - Agitation [Recovering/Resolving]
  - Mental status changes [Recovering/Resolving]
  - Drug level increased [Recovering/Resolving]
  - Hyperhidrosis [Recovering/Resolving]
  - Musculoskeletal stiffness [Recovering/Resolving]
  - Clonus [Recovering/Resolving]
  - Hyperthermia [Recovered/Resolved]
  - Confusional state [Recovering/Resolving]
  - Flushing [Recovering/Resolving]
  - Muscle rigidity [Recovering/Resolving]
  - Serotonin syndrome [Recovering/Resolving]
  - Mydriasis [Recovering/Resolving]
